FAERS Safety Report 22049438 (Version 3)
Quarter: 2023Q2

REPORT INFORMATION
  Report Type: Spontaneous
  Country: TR (occurrence: TR)
  Receive Date: 20230301
  Receipt Date: 20230418
  Transmission Date: 20230722
  Serious: Yes (Other)
  Sender: FDA-Public Use
  Company Number: TR-PFIZER INC-PV202300027963

PATIENT
  Age: 30 Year
  Sex: Male
  Weight: 60 kg

DRUGS (7)
  1. VFEND [Suspect]
     Active Substance: VORICONAZOLE
     Indication: Bronchopulmonary aspergillosis
     Dosage: 2 DF, 1X/DAY
     Route: 048
     Dates: start: 20230201, end: 20230210
  2. VFEND [Suspect]
     Active Substance: VORICONAZOLE
     Indication: Prophylaxis
  3. TACROLIMUS [Suspect]
     Active Substance: TACROLIMUS
     Indication: Solid organ transplant
     Dosage: 2 DF, 2X/DAY
     Dates: start: 20220121
  4. TACROLIMUS [Suspect]
     Active Substance: TACROLIMUS
     Dosage: 2.5 DF
     Dates: start: 20220121
  5. TACROLIMUS [Suspect]
     Active Substance: TACROLIMUS
     Dosage: 1 DF, DAILY
     Route: 048
     Dates: start: 20230207
  6. MYCOPHENOLATE MOFETIL [Concomitant]
     Active Substance: MYCOPHENOLATE MOFETIL
     Indication: Solid organ transplant
     Dosage: 2 DF, 1X/DAY
     Route: 048
     Dates: start: 20220121
  7. PREDNISOLONE [Concomitant]
     Active Substance: PREDNISOLONE
     Indication: Solid organ transplant
     Dosage: 1X5-10MG
     Route: 048
     Dates: start: 20220121

REACTIONS (2)
  - Type 2 diabetes mellitus [Recovering/Resolving]
  - Off label use [Unknown]

NARRATIVE: CASE EVENT DATE: 20230201
